FAERS Safety Report 9723050 (Version 3)
Quarter: 2013Q4

REPORT INFORMATION
  Report Type: Spontaneous
  Country: US (occurrence: US)
  Receive Date: 20131202
  Receipt Date: 20131218
  Transmission Date: 20140711
  Serious: Yes (Hospitalization)
  Sender: FDA-Public Use
  Company Number: US-JNJFOC-20131114844

PATIENT
  Age: 26 Year
  Sex: Female
  Weight: 66.6 kg

DRUGS (1)
  1. XARELTO [Suspect]
     Indication: PULMONARY EMBOLISM
     Route: 048
     Dates: start: 20130615, end: 20130630

REACTIONS (3)
  - Vaginal haemorrhage [Recovering/Resolving]
  - Dizziness [Recovered/Resolved]
  - Anaemia [Recovering/Resolving]
